FAERS Safety Report 14617438 (Version 2)
Quarter: 2022Q2

REPORT INFORMATION
  Report Type: Spontaneous
  Country: US (occurrence: US)
  Receive Date: 20180309
  Receipt Date: 20220615
  Transmission Date: 20220721
  Serious: Yes (Other)
  Sender: FDA-Public Use
  Company Number: US-MYLANLABS-2018M1016254

PATIENT
  Age: 64 Year
  Sex: Female

DRUGS (10)
  1. LEUCOVORIN CALCIUM [Suspect]
     Active Substance: LEUCOVORIN CALCIUM
     Indication: Colon cancer metastatic
     Dosage: UNK UNK, CYCLE
  2. LEUCOVORIN CALCIUM [Suspect]
     Active Substance: LEUCOVORIN CALCIUM
     Dosage: UNK UNK, CYCLE
  3. LEUCOVORIN CALCIUM [Suspect]
     Active Substance: LEUCOVORIN CALCIUM
     Dosage: FOLFOX REGIMEN; WITH ONDANSETRON AS PREMEDICATION
  4. ONDANSETRON [Suspect]
     Active Substance: ONDANSETRON
     Indication: Premedication
     Dosage: UNK
  5. IRINOTECAN [Suspect]
     Active Substance: IRINOTECAN
     Indication: Colon cancer metastatic
     Dosage: FOLFIRI REGIMEN, CYCLE ONE
  6. IRINOTECAN [Suspect]
     Active Substance: IRINOTECAN
     Dosage: FOLFIRI REGIMEN, CYCLE TWO; WITH PALONOSETRON AS PREMEDICATION
  7. PALONOSETRON [Concomitant]
     Active Substance: PALONOSETRON
     Indication: Premedication
     Dosage: UNK
  8. DEXAMETHASONE [Concomitant]
     Active Substance: DEXAMETHASONE
     Indication: Premedication
     Dosage: UNK
  9. FLUOROURACIL [Concomitant]
     Active Substance: FLUOROURACIL
     Indication: Colon cancer metastatic
     Dosage: FOLFIRI REGIMEN
  10. OXALIPLATIN [Concomitant]
     Active Substance: OXALIPLATIN
     Indication: Colon cancer metastatic
     Dosage: FOLFOX REGIMEN

REACTIONS (4)
  - Rash [Unknown]
  - Tongue oedema [Unknown]
  - Angioedema [Unknown]
  - Urticaria [Unknown]
